FAERS Safety Report 6342490-3 (Version None)
Quarter: 2009Q3

REPORT INFORMATION
  Report Type: 
  Country: None (occurrence: None)
  Receive Date: 20090908
  Receipt Date: 20070803
  Transmission Date: 20100115
  Serious: Yes (Other)
  Sender: FDA-Public Use
  Company Number: US-ASTRAZENECA-2007UW09604

PATIENT
  Age: 32 Year
  Sex: Male
  Weight: 156.9 kg

DRUGS (11)
  1. SEROQUEL [Suspect]
     Indication: DEPRESSION
     Dosage: 100-600 MG
     Route: 048
     Dates: start: 19980205
  2. SEROQUEL [Suspect]
     Route: 048
     Dates: start: 19980411, end: 20031010
  3. TRAZODONE [Concomitant]
     Dates: start: 19961017
  4. BENZOTROPINE [Concomitant]
     Dates: start: 19961212
  5. NEURONTIN [Concomitant]
     Indication: CONVULSION
     Dosage: 300-2400 MG
     Dates: start: 19961212, end: 20030107
  6. NEURONTIN [Concomitant]
     Indication: PAIN
     Dosage: 300-2400 MG
     Dates: start: 19961212, end: 20030107
  7. NEURONTIN [Concomitant]
     Indication: RESTLESS LEGS SYNDROME
     Dosage: 300-2400 MG
     Dates: start: 19961212, end: 20030107
  8. NEURONTIN [Concomitant]
     Indication: NERVOUS SYSTEM DISORDER
     Dosage: 300-2400 MG
     Dates: start: 19961212, end: 20030107
  9. HALDOL [Concomitant]
     Dosage: 2-20 MG
     Dates: start: 19970922, end: 20030107
  10. EFFEXOR [Concomitant]
     Indication: ANXIETY DISORDER
     Dosage: 75-450 MG
     Dates: start: 19970922
  11. AMBIEN [Concomitant]
     Dosage: 10 MG 1-2 TWO -THREE TIMES A WEEK
     Dates: start: 19980701

REACTIONS (5)
  - DIABETIC NEUROPATHY [None]
  - DIABETIC ULCER [None]
  - NEUROPATHY PERIPHERAL [None]
  - TYPE 1 DIABETES MELLITUS [None]
  - TYPE 2 DIABETES MELLITUS [None]
